FAERS Safety Report 13331390 (Version 1)
Quarter: 2017Q1

REPORT INFORMATION
  Report Type: Spontaneous
  Country: US (occurrence: US)
  Receive Date: 20170314
  Receipt Date: 20170314
  Transmission Date: 20170428
  Serious: No
  Sender: FDA-Public Use
  Company Number: US-JNJFOC-20170107976

PATIENT
  Age: 18 Month
  Sex: Female

DRUGS (2)
  1. CHILDRENS MOTRIN [Suspect]
     Active Substance: IBUPROFEN
     Route: 048
  2. CHILDRENS MOTRIN [Suspect]
     Active Substance: IBUPROFEN
     Indication: PRODUCT USED FOR UNKNOWN INDICATION
     Dosage: 1.5 TBSP, ONE TIME
     Route: 048
     Dates: start: 20170109

REACTIONS (2)
  - Drug administration error [Unknown]
  - Overdose [Unknown]

NARRATIVE: CASE EVENT DATE: 20170109
